FAERS Safety Report 5055320-7 (Version None)
Quarter: 2006Q3

REPORT INFORMATION
  Report Type: 
  Country: None (occurrence: None)
  Receive Date: 20060714
  Receipt Date: 20060628
  Transmission Date: 20061208
  Serious: Yes (Hospitalization)
  Sender: FDA-Public Use
  Company Number: BE200604002730

PATIENT
  Age: 13 Year
  Sex: Female

DRUGS (1)
  1. HUMATROPE [Suspect]
     Indication: TURNER'S SYNDROME
     Dosage: DAILY (1/D) SUBCUTANEOUS
     Route: 058
     Dates: start: 20051201

REACTIONS (3)
  - FALLOPIAN TUBE DISORDER [None]
  - PAROVARIAN CYST [None]
  - PHARMACEUTICAL PRODUCT COMPLAINT [None]
